FAERS Safety Report 7150338-2 (Version None)
Quarter: 2010Q4

REPORT INFORMATION
  Report Type: 
  Country: None (occurrence: None)
  Receive Date: 20101123
  Receipt Date: 20101015
  Transmission Date: 20110411
  Serious: No
  Sender: FDA-Public Use
  Company Number: 020499

PATIENT
  Sex: Female

DRUGS (2)
  1. CIMZIA [Suspect]
     Dosage: SUBCUTANEOUS
     Route: 058
     Dates: end: 20100401
  2. CIMZIA [Suspect]
     Dosage: SUBCUTANEOUS
     Route: 058
     Dates: start: 20100723

REACTIONS (4)
  - ABDOMINAL PAIN [None]
  - ARTHRALGIA [None]
  - FATIGUE [None]
  - PHARYNGITIS [None]
